FAERS Safety Report 8856656 (Version 1)
Quarter: 2012Q4

REPORT INFORMATION
  Report Type: 
  Country: US (occurrence: US)
  Receive Date: 20121023
  Receipt Date: 20121023
  Transmission Date: 20130627
  Serious: No
  Sender: FDA-Public Use
  Company Number: US-AMGEN-USASP2012056390

PATIENT
  Age: 59 Year
  Sex: Male
  Weight: 96.15 kg

DRUGS (1)
  1. ENBREL [Suspect]
     Indication: PSORIATIC ARTHROPATHY
     Dosage: 50 mg, qwk
     Route: 058
     Dates: start: 20110513

REACTIONS (4)
  - Respiratory tract congestion [Unknown]
  - Productive cough [Unknown]
  - Hyperhidrosis [Unknown]
  - Nasopharyngitis [Unknown]
